FAERS Safety Report 4622704-8 (Version None)
Quarter: 2005Q1

REPORT INFORMATION
  Report Type: 
  Country: None (occurrence: None)
  Receive Date: 20050329
  Receipt Date: 20050329
  Transmission Date: 20050727
  Serious: Yes (Hospitalization)
  Sender: FDA-Public Use
  Company Number: None

PATIENT
  Age: 57 Year
  Sex: Male
  Weight: 66 kg

DRUGS (1)
  1. DIVALPROEX SODIUM [Suspect]
     Indication: CONVULSION
     Dosage: 750MG   EVERY MORNING  ORAL;  500MG  EVERY MORNING  ORAL
     Route: 048
     Dates: start: 20050308, end: 20050313

REACTIONS (2)
  - AMMONIA INCREASED [None]
  - COMA [None]
